FAERS Safety Report 6622398-6 (Version None)
Quarter: 2010Q1

REPORT INFORMATION
  Report Type: 
  Country: None (occurrence: None)
  Receive Date: 20100310
  Receipt Date: 20100126
  Transmission Date: 20100710
  Serious: No
  Sender: FDA-Public Use
  Company Number: US-BIOGENIDEC-2010BI002823

PATIENT
  Age: 47 Year
  Sex: Female

DRUGS (3)
  1. AVONEX [Suspect]
     Indication: MULTIPLE SCLEROSIS
     Route: 030
     Dates: start: 19981215, end: 20030601
  2. AVONEX [Suspect]
     Route: 030
     Dates: start: 20030101, end: 20040601
  3. AVONEX [Suspect]
     Route: 030
     Dates: start: 20040605

REACTIONS (3)
  - HEADACHE [None]
  - PAIN [None]
  - WRONG DRUG ADMINISTERED [None]
